FAERS Safety Report 9664888 (Version 2)
Quarter: 2014Q2

REPORT INFORMATION
  Report Type: Spontaneous
  Country: CH (occurrence: CH)
  Receive Date: 20131101
  Receipt Date: 20140418
  Transmission Date: 20141212
  Serious: Yes (Death, Life-Threatening, Hospitalization)
  Sender: FDA-Public Use
  Company Number: CH-ASTRAZENECA-2013SE79795

PATIENT
  Age: 54 Year
  Sex: Female

DRUGS (6)
  1. SEROQUEL [Suspect]
     Indication: SUICIDE ATTEMPT
     Dosage: 10 TABLETS, 1000 MG TOTAL
     Route: 048
     Dates: start: 20130904, end: 20130904
  2. STILNOX [Suspect]
     Indication: DRUG ABUSE
     Route: 065
  3. STILNOX [Suspect]
     Indication: DRUG ABUSE
     Dosage: 220 MG TOTAL
     Route: 065
     Dates: start: 20130904, end: 20130904
  4. STILNOX [Suspect]
     Indication: DRUG ABUSE
     Dosage: 5 MAXIMUN 6 TABLETS DAILY
     Route: 065
  5. MARCOUMAR [Concomitant]
     Indication: PULMONARY EMBOLISM
     Route: 048
     Dates: start: 201112
  6. ANEXATE [Concomitant]
     Indication: OVERDOSE
     Route: 042
     Dates: start: 20130904, end: 20130904

REACTIONS (5)
  - Intentional overdose [Fatal]
  - Suicide attempt [Fatal]
  - Electrocardiogram QT prolonged [Fatal]
  - Extrasystoles [Fatal]
  - Ventricular fibrillation [Fatal]
